FAERS Safety Report 6522694-7 (Version None)
Quarter: 2009Q4

REPORT INFORMATION
  Report Type: 
  Country: None (occurrence: None)
  Receive Date: 20091224
  Receipt Date: 20091209
  Transmission Date: 20100525
  Serious: Yes (Other)
  Sender: FDA-Public Use
  Company Number: AUR-APL-2009-01657

PATIENT
  Age: 12 Year
  Sex: Male

DRUGS (4)
  1. RISPERIDONE [Suspect]
     Indication: OBSESSIVE-COMPULSIVE DISORDER
     Dosage: 2-5MG - DAILY
  2. SERTRALINE HCL [Suspect]
     Indication: OBSESSIVE-COMPULSIVE DISORDER
     Dosage: 50-100MG - DAILY
  3. CLOMIPRAMINE [Suspect]
     Indication: OBSESSIVE-COMPULSIVE DISORDER
     Dosage: 75MG - DAILY
  4. FLUVOXAMINE [Suspect]
     Indication: OBSESSIVE-COMPULSIVE DISORDER
     Dosage: 150MG - DAILY

REACTIONS (11)
  - CONDITION AGGRAVATED [None]
  - DIZZINESS [None]
  - DRY MOUTH [None]
  - FATIGUE [None]
  - HALLUCINATIONS, MIXED [None]
  - OBSESSIVE-COMPULSIVE DISORDER [None]
  - PAIN IN EXTREMITY [None]
  - PARANOIA [None]
  - PSYCHOTIC DISORDER [None]
  - SEDATION [None]
  - WEIGHT DECREASED [None]
